FAERS Safety Report 23421658 (Version 2)
Quarter: 2024Q1

REPORT INFORMATION
  Report Type: Spontaneous
  Country: JP (occurrence: JP)
  Receive Date: 20240119
  Receipt Date: 20240129
  Transmission Date: 20240410
  Serious: Yes (Death, Hospitalization)
  Sender: FDA-Public Use
  Company Number: JP-002147023-NVSJ2024JP000761

PATIENT
  Age: 83 Year
  Sex: Male

DRUGS (1)
  1. NEORAL [Suspect]
     Active Substance: CYCLOSPORINE
     Indication: Autoimmune haemolytic anaemia
     Dosage: 200 MG
     Route: 048

REACTIONS (2)
  - Scedosporium infection [Fatal]
  - Granuloma [Unknown]

NARRATIVE: CASE EVENT DATE: 20220801
